FAERS Safety Report 19115961 (Version 5)
Quarter: 2024Q1

REPORT INFORMATION
  Report Type: Spontaneous
  Country: US (occurrence: US)
  Receive Date: 20210409
  Receipt Date: 20240328
  Transmission Date: 20240410
  Serious: Yes (Other)
  Sender: FDA-Public Use
  Company Number: US-JNJFOC-20210400251

PATIENT
  Age: 66 Year
  Sex: Female
  Weight: 73.548 kg

DRUGS (24)
  1. XARELTO [Suspect]
     Active Substance: RIVAROXABAN
     Indication: Thrombosis
     Dosage: FOR 21 DAYS
     Route: 048
     Dates: start: 20200608, end: 20200629
  2. XARELTO [Suspect]
     Active Substance: RIVAROXABAN
     Route: 048
     Dates: start: 20200629, end: 20210104
  3. ELIQUIS [Suspect]
     Active Substance: APIXABAN
  4. ATORVASTATIN [Concomitant]
     Active Substance: ATORVASTATIN
  5. METFORMIN [Concomitant]
     Active Substance: METFORMIN HYDROCHLORIDE
  6. POTASSIUM [Concomitant]
     Active Substance: POTASSIUM
  7. HYDROCHLOROTHIAZIDE [Concomitant]
     Active Substance: HYDROCHLOROTHIAZIDE
  8. AMLODIPINE BESYLATE [Concomitant]
     Active Substance: AMLODIPINE BESYLATE
     Dosage: 10-20 MG
  9. CIPROFLOXACIN HYDROCHLORIDE [Concomitant]
     Active Substance: CIPROFLOXACIN HYDROCHLORIDE
     Dosage: EVERY 12 HOURS FOR 10 DAYS
  10. METHYLPREDNISOLONE [Concomitant]
     Active Substance: METHYLPREDNISOLONE
     Dosage: TAKE 6 TABLETS ON DAY 1 AS DIRECTED ON PACKAGE AND DECREASE BY 1 TAB EACH DAY
  11. POVIDONE-IODINE [Concomitant]
     Active Substance: POVIDONE-IODINE
  12. GRAMICIDIN\NEOMYCIN SULFATE\POLYMYXIN B SULFATE [Concomitant]
     Active Substance: GRAMICIDIN\NEOMYCIN SULFATE\POLYMYXIN B SULFATE
  13. HYDROXYCHLOROQUINE [Concomitant]
     Active Substance: HYDROXYCHLOROQUINE
     Indication: Arthralgia
  14. NALTREXONE [Concomitant]
     Active Substance: NALTREXONE
     Indication: Wound
  15. NALTREXONE [Concomitant]
     Active Substance: NALTREXONE
     Indication: Skin laceration
  16. ARNICARE [Concomitant]
     Active Substance: HOMEOPATHICS
     Indication: Pain
  17. AMOXICILLIN\CLAVULANIC ACID [Concomitant]
     Active Substance: AMOXICILLIN\CLAVULANIC ACID
     Dosage: 875-125MG
  18. DESOXIMETASONE [Concomitant]
     Active Substance: DESOXIMETASONE
  19. ERYTHROMYCIN [Concomitant]
     Active Substance: ERYTHROMYCIN
  20. OXYCODONE [Concomitant]
     Active Substance: OXYCODONE\OXYCODONE HYDROCHLORIDE
  21. PREDNISOLONE [Concomitant]
     Active Substance: PREDNISOLONE
  22. FLUOCINOLONE [Concomitant]
     Active Substance: FLUOCINOLONE
  23. UREA [Concomitant]
     Active Substance: UREA
     Dosage: 40%
  24. PFIZER BIONTECH COVID-19 VACCINE, BIVALENT (ORIGINAL AND OMICRON BA.4/ [Concomitant]

REACTIONS (9)
  - Systemic lupus erythematosus [Not Recovered/Not Resolved]
  - Lung neoplasm malignant [Unknown]
  - Thrombosis [Not Recovered/Not Resolved]
  - Arthritis [Unknown]
  - Hypoaesthesia [Unknown]
  - Otorrhoea [Unknown]
  - Headache [Unknown]
  - Dysphonia [Unknown]
  - Visual impairment [Unknown]

NARRATIVE: CASE EVENT DATE: 20200101
